FAERS Safety Report 21712220 (Version 1)
Quarter: 2022Q4

REPORT INFORMATION
  Report Type: Spontaneous
  Country: US (occurrence: US)
  Receive Date: 20221212
  Receipt Date: 20221212
  Transmission Date: 20230112
  Serious: No
  Sender: FDA-Public Use
  Company Number: US-BRISTOL-MYERS SQUIBB COMPANY-2022-151625

PATIENT
  Age: 75 Year
  Sex: Male

DRUGS (1)
  1. REVLIMID [Suspect]
     Active Substance: LENALIDOMIDE
     Indication: Plasma cell myeloma
     Dosage: QD X 7 DAYS THEN OFF 14 DAYS
     Route: 048
     Dates: start: 20220531

REACTIONS (5)
  - Abdominal distension [Unknown]
  - Back pain [Unknown]
  - Musculoskeletal chest pain [Unknown]
  - Myalgia [Unknown]
  - Off label use [Unknown]
